FAERS Safety Report 12844866 (Version 2)
Quarter: 2017Q1

REPORT INFORMATION
  Report Type: Spontaneous
  Country: US (occurrence: US)
  Receive Date: 20161013
  Receipt Date: 20170331
  Transmission Date: 20170428
  Serious: No
  Sender: FDA-Public Use
  Company Number: US-TEVA-702208USA

PATIENT
  Sex: Female

DRUGS (4)
  1. ASA [Concomitant]
     Active Substance: ASPIRIN
  2. MUCINEX [Concomitant]
     Active Substance: GUAIFENESIN
  3. COPAXONE [Suspect]
     Active Substance: GLATIRAMER ACETATE
     Indication: MULTIPLE SCLEROSIS
     Route: 058
     Dates: start: 20160630
  4. LINZESS [Concomitant]
     Active Substance: LINACLOTIDE

REACTIONS (4)
  - Injection site reaction [Unknown]
  - Muscular weakness [Unknown]
  - Pain [Unknown]
  - Paraesthesia [Unknown]

NARRATIVE: CASE EVENT DATE: 2016
